FAERS Safety Report 24662685 (Version 1)
Quarter: 2024Q4

REPORT INFORMATION
  Report Type: Spontaneous
  Country: US (occurrence: US)
  Receive Date: 20241126
  Receipt Date: 20241126
  Transmission Date: 20250114
  Serious: No
  Sender: JOHNSON AND JOHNSON
  Company Number: US-JNJFOC-20241122566

PATIENT

DRUGS (1)
  1. SIMPONI [Suspect]
     Active Substance: GOLIMUMAB
     Indication: Proctitis ulcerative
     Route: 058

REACTIONS (3)
  - Device defective [Unknown]
  - Off label use [Unknown]
  - Product dose omission issue [Unknown]
